FAERS Safety Report 5853306-3 (Version None)
Quarter: 2008Q3

REPORT INFORMATION
  Report Type: 
  Country: None (occurrence: None)
  Receive Date: 20080821
  Receipt Date: 20080812
  Transmission Date: 20090109
  Serious: Yes (Other)
  Sender: FDA-Public Use
  Company Number: US-PFIZER INC-2008067327

PATIENT
  Sex: Male
  Weight: 70.909 kg

DRUGS (6)
  1. LIPITOR [Suspect]
     Indication: CORONARY ARTERY BYPASS
  2. ATENOLOL [Concomitant]
  3. ACE INHIBITOR NOS [Concomitant]
  4. ALL OTHER THERAPEUTIC PRODUCTS [Concomitant]
  5. ALL OTHER THERAPEUTIC PRODUCTS [Concomitant]
  6. ASPIRIN [Concomitant]

REACTIONS (8)
  - ASTHENIA [None]
  - CONDUCTION DISORDER [None]
  - FATIGUE [None]
  - MEMORY IMPAIRMENT [None]
  - MOBILITY DECREASED [None]
  - MUSCULOSKELETAL PAIN [None]
  - PAIN IN EXTREMITY [None]
  - PROCEDURAL PAIN [None]
